FAERS Safety Report 5700751-2 (Version None)
Quarter: 2008Q2

REPORT INFORMATION
  Report Type: 
  Country: None (occurrence: None)
  Receive Date: 20080410
  Receipt Date: 20080320
  Transmission Date: 20081010
  Serious: No
  Sender: FDA-Public Use
  Company Number: A0712745A

PATIENT
  Age: 61 Year
  Sex: Female

DRUGS (7)
  1. TYKERB [Suspect]
     Indication: BREAST CANCER
     Dosage: 5TAB AT NIGHT
     Route: 048
     Dates: start: 20080101
  2. NAVELBINE [Concomitant]
  3. THYROID TAB [Concomitant]
     Route: 048
  4. ACTOS [Concomitant]
  5. CLARITIN [Concomitant]
  6. PROZAC [Concomitant]
  7. OXYCONTIN [Concomitant]

REACTIONS (3)
  - INSOMNIA [None]
  - NAUSEA [None]
  - VOMITING [None]
